FAERS Safety Report 9862639 (Version 3)
Quarter: 2014Q4

REPORT INFORMATION
  Report Type: Spontaneous
  Country: US (occurrence: US)
  Receive Date: 20140203
  Receipt Date: 20141105
  Transmission Date: 20150529
  Serious: Yes (Hospitalization, Other)
  Sender: FDA-Public Use
  Company Number: US-009507513-1402USA000067

PATIENT
  Sex: Female

DRUGS (1)
  1. NUVARING [Suspect]
     Active Substance: ETHINYL ESTRADIOL\ETONOGESTREL
     Indication: MENSTRUATION IRREGULAR
     Dosage: UNK
     Route: 067
     Dates: start: 20100416

REACTIONS (17)
  - Unresponsive to stimuli [Recovered/Resolved]
  - Hypothyroidism [Unknown]
  - Myalgia [Unknown]
  - Cerebral haemorrhage [Unknown]
  - Off label use [Unknown]
  - Cerebrovascular accident [Unknown]
  - Hyperhidrosis [Unknown]
  - Aspiration [Unknown]
  - Periportal oedema [Unknown]
  - Abdominal discomfort [Unknown]
  - Biliary dilatation [Unknown]
  - Mental status changes [Unknown]
  - Vomiting [Unknown]
  - Headache [Unknown]
  - Diarrhoea [Unknown]
  - Photophobia [Unknown]
  - Liver disorder [Unknown]

NARRATIVE: CASE EVENT DATE: 20100924
